FAERS Safety Report 7889059-7 (Version None)
Quarter: 2011Q4

REPORT INFORMATION
  Report Type: 
  Country: None (occurrence: None)
  Receive Date: 20111103
  Receipt Date: 20111028
  Transmission Date: 20120403
  Serious: Yes (Other)
  Sender: FDA-Public Use
  Company Number: US-BAXTER-2011BH034567

PATIENT
  Age: 50 Year
  Sex: Female

DRUGS (1)
  1. INFUMORPH [Suspect]
     Indication: PRODUCT USED FOR UNKNOWN INDICATION
     Route: 065

REACTIONS (2)
  - NEUROLOGICAL COMPLICATION ASSOCIATED WITH DEVICE [None]
  - MONOPLEGIA [None]
